FAERS Safety Report 16021068 (Version 1)
Quarter: 2019Q2

REPORT INFORMATION
  Report Type: Spontaneous
  Country: US (occurrence: US)
  Receive Date: 20190228
  Receipt Date: 20190228
  Transmission Date: 20190711
  Serious: Yes (Other)
  Sender: FDA-Public Use
  Company Number: None

PATIENT
  Age: 17 Month
  Sex: Male
  Weight: 13.5 kg

DRUGS (3)
  1. OSELTAMIVIR PHOSPHATE. [Concomitant]
     Active Substance: OSELTAMIVIR PHOSPHATE
  2. TAMIFLU [Concomitant]
     Active Substance: OSELTAMIVIR PHOSPHATE
  3. OSELTAMIVIR [Suspect]
     Active Substance: OSELTAMIVIR
     Indication: ANTIVIRAL PROPHYLAXIS
     Dosage: ?          QUANTITY:5 ML;?
     Route: 048
     Dates: start: 20190225, end: 20190228

REACTIONS (4)
  - Rash erythematous [None]
  - Skin warm [None]
  - Rash papular [None]
  - Urticaria [None]

NARRATIVE: CASE EVENT DATE: 20190228
